FAERS Safety Report 5410038-3 (Version None)
Quarter: 2007Q3

REPORT INFORMATION
  Report Type: 
  Country: None (occurrence: None)
  Receive Date: 20070809
  Receipt Date: 20070802
  Transmission Date: 20080115
  Serious: Yes (Other)
  Sender: FDA-Public Use
  Company Number: GB-ABBOTT-07P-167-0376592-00

PATIENT
  Sex: Male

DRUGS (2)
  1. KLARICID TABLETS [Suspect]
     Indication: CHOLELITHIASIS
     Dates: start: 20070720
  2. METRONIDAZOLE [Concomitant]
     Indication: CHOLELITHIASIS

REACTIONS (8)
  - HYPOAESTHESIA [None]
  - INSOMNIA [None]
  - MYASTHENIA GRAVIS [None]
  - NAUSEA [None]
  - NEUROLOGICAL SYMPTOM [None]
  - PARAESTHESIA [None]
  - SENSORY DISTURBANCE [None]
  - VOMITING [None]
